FAERS Safety Report 9025940 (Version 3)
Quarter: 2013Q1

REPORT INFORMATION
  Report Type: Spontaneous
  Country: US (occurrence: None)
  Receive Date: 20130104
  Receipt Date: 20130129
  Transmission Date: 20140127
  Serious: Yes (Death)
  Sender: FDA-Public Use
  Company Number: 2012-1213

PATIENT
  Age: 80 Year
  Sex: Female

DRUGS (1)
  1. KYPROLIS [Suspect]
     Indication: PLASMA CELL MYELOMA
     Dosage: (25 MG, 2 IN 1 WK)
     Route: 042
     Dates: start: 20121010, end: 20121108

REACTIONS (4)
  - Nail discolouration [None]
  - Condition aggravated [None]
  - Disease complication [None]
  - Plasma cell myeloma [None]
